FAERS Safety Report 19898577 (Version 2)
Quarter: 2021Q4

REPORT INFORMATION
  Report Type: Spontaneous
  Country: DE (occurrence: DE)
  Receive Date: 20210930
  Receipt Date: 20211029
  Transmission Date: 20220303
  Serious: Yes (Life-Threatening, Hospitalization, Other)
  Sender: FDA-Public Use
  Company Number: DE-KRKA-DE2021K12542SPO

PATIENT
  Age: 55 Year
  Sex: Female
  Weight: 70 kg

DRUGS (2)
  1. VENLAFAXINE [Suspect]
     Active Substance: VENLAFAXINE HYDROCHLORIDE
     Indication: Suicide attempt
     Dosage: 6 G, SINGLE DOSE
     Route: 048
     Dates: start: 20210916, end: 20210916
  2. CANDESARTAN CILEXETIL\HYDROCHLOROTHIAZIDE [Suspect]
     Active Substance: CANDESARTAN CILEXETIL\HYDROCHLOROTHIAZIDE
     Indication: Suicide attempt
     Dosage: 960 MG/750 MG, SINGLE DOSE
     Route: 048
     Dates: start: 20210916, end: 20210916

REACTIONS (6)
  - Suicide attempt [Unknown]
  - Sedation [Unknown]
  - Fatigue [Unknown]
  - Tachycardia [Unknown]
  - Blood pressure increased [Unknown]
  - Agitation [Unknown]

NARRATIVE: CASE EVENT DATE: 20210916
